FAERS Safety Report 24875088 (Version 1)
Quarter: 2025Q1

REPORT INFORMATION
  Report Type: Spontaneous
  Country: US (occurrence: US)
  Receive Date: 20250122
  Receipt Date: 20250122
  Transmission Date: 20250409
  Serious: Yes (Death, Hospitalization)
  Sender: PFIZER
  Company Number: US-PFIZER INC-202500012998

PATIENT
  Age: 75 Year
  Sex: Male

DRUGS (5)
  1. DOFETILIDE [Suspect]
     Active Substance: DOFETILIDE
     Route: 048
  2. DOFETILIDE [Suspect]
     Active Substance: DOFETILIDE
     Route: 065
  3. DOFETILIDE [Suspect]
     Active Substance: DOFETILIDE
     Route: 065
  4. ACETAMINOPHEN\OXYCODONE HYDROCHLORIDE [Suspect]
     Active Substance: ACETAMINOPHEN\OXYCODONE HYDROCHLORIDE
     Route: 048
  5. ACETAMINOPHEN\OXYCODONE HYDROCHLORIDE [Suspect]
     Active Substance: ACETAMINOPHEN\OXYCODONE HYDROCHLORIDE
     Route: 065

REACTIONS (1)
  - Completed suicide [Fatal]

NARRATIVE: CASE EVENT DATE: 20230101
